FAERS Safety Report 16638297 (Version 2)
Quarter: 2019Q3

REPORT INFORMATION
  Report Type: Report from Study
  Country: AU (occurrence: AU)
  Receive Date: 20190726
  Receipt Date: 20190910
  Transmission Date: 20191004
  Serious: Yes (Hospitalization)
  Sender: FDA-Public Use
  Company Number: AU-PFIZER INC-2019309202

PATIENT
  Age: 62 Year
  Sex: Female
  Weight: 68 kg

DRUGS (8)
  1. PF-06463922 [Suspect]
     Active Substance: LORLATINIB
     Indication: NON-SMALL CELL LUNG CANCER
     Dosage: 100 MG, 6 WEEK CYCLE
     Route: 048
     Dates: start: 20160831, end: 20190716
  2. PERINDOPRIL [Concomitant]
     Active Substance: PERINDOPRIL
     Indication: HYPERTENSION
     Dosage: 2 MG, DAILY
     Route: 048
     Dates: start: 20180904
  3. URAL [CITRIC ACID;SODIUM BICARBONATE;SODIUM CITRATE;TARTARIC ACID] [Concomitant]
     Indication: POLLAKIURIA
     Dosage: 1 SACHET, AS NEEDED
     Route: 048
     Dates: start: 20170411
  4. PARACETAMOL [Concomitant]
     Active Substance: ACETAMINOPHEN
     Indication: PAIN
     Dosage: 500 MG, AS NEEDED
     Route: 048
     Dates: start: 1976
  5. ROSUVASTATIN. [Concomitant]
     Active Substance: ROSUVASTATIN
     Indication: HYPERCHOLESTEROLAEMIA
     Dosage: 40 MG, PO NOCTE
     Route: 048
     Dates: start: 20170216
  6. EZETIMIBE. [Concomitant]
     Active Substance: EZETIMIBE
     Indication: BLOOD CHOLESTEROL INCREASED
     Dosage: 10 MG, DAILY
     Route: 048
     Dates: start: 20180503
  7. EZETIMIBE. [Concomitant]
     Active Substance: EZETIMIBE
     Indication: BLOOD TRIGLYCERIDES INCREASED
  8. ROSUVASTATIN. [Concomitant]
     Active Substance: ROSUVASTATIN
     Indication: HYPERTRIGLYCERIDAEMIA

REACTIONS (1)
  - Pericardial effusion [Recovered/Resolved]

NARRATIVE: CASE EVENT DATE: 20190716
